FAERS Safety Report 10449791 (Version 3)
Quarter: 2014Q4

REPORT INFORMATION
  Report Type: Spontaneous
  Country: US (occurrence: US)
  Receive Date: 20140912
  Receipt Date: 20141030
  Transmission Date: 20150528
  Serious: No
  Sender: FDA-Public Use
  Company Number: US-PFIZER INC-2014248881

PATIENT
  Age: 87 Year
  Sex: Male
  Weight: 61.22 kg

DRUGS (3)
  1. XALATAN [Suspect]
     Active Substance: LATANOPROST
     Indication: OPTIC NERVE DISORDER
  2. FLOMAX [Concomitant]
     Active Substance: TAMSULOSIN HYDROCHLORIDE
     Indication: DYSURIA
     Dosage: UNK
  3. XALATAN [Suspect]
     Active Substance: LATANOPROST
     Indication: GLAUCOMA
     Dosage: 1 GTT IN EACH EYE, 1X/DAY
     Route: 047
     Dates: start: 2010

REACTIONS (3)
  - Hearing impaired [Not Recovered/Not Resolved]
  - Skin discolouration [Recovered/Resolved]
  - Administration related reaction [Recovered/Resolved]
